FAERS Safety Report 17856326 (Version 1)
Quarter: 2020Q2

REPORT INFORMATION
  Report Type: Spontaneous
  Country: CN (occurrence: CN)
  Receive Date: 20200603
  Receipt Date: 20200603
  Transmission Date: 20200714
  Serious: Yes (Other)
  Sender: FDA-Public Use
  Company Number: CN-BAYER-2020-103658

PATIENT
  Age: 62 Year
  Sex: Male
  Weight: 40 kg

DRUGS (2)
  1. AVELOX [Suspect]
     Active Substance: MOXIFLOXACIN HYDROCHLORIDE
     Dosage: 250 ML, QD
     Route: 041
     Dates: start: 20200520, end: 20200521
  2. GLUCOBAY [Suspect]
     Active Substance: ACARBOSE
     Dosage: UNK
     Route: 048

REACTIONS (3)
  - Oesophageal obstruction [None]
  - Dysphagia [None]
  - Palpitations [Recovered/Resolved]

NARRATIVE: CASE EVENT DATE: 20200521
